FAERS Safety Report 21311128 (Version 1)
Quarter: 2022Q3

REPORT INFORMATION
  Report Type: Spontaneous
  Country: US (occurrence: None)
  Receive Date: 20220909
  Receipt Date: 20220909
  Transmission Date: 20221026
  Serious: No
  Sender: FDA-Public Use
  Company Number: US-ARIS GLOBAL-202201-0091

PATIENT
  Age: 87 Year
  Sex: Female

DRUGS (14)
  1. OXERVATE [Suspect]
     Active Substance: CENEGERMIN-BKBJ
     Indication: Neurotrophic keratopathy
     Route: 047
     Dates: start: 20220110, end: 20220307
  2. VENLAFAXINE HCL [Concomitant]
     Active Substance: VENLAFAXINE HYDROCHLORIDE
  3. ASPIRIN [Concomitant]
     Active Substance: ASPIRIN
  4. LOSARTAN- HYDROCHLOROTHIAZIDE [Concomitant]
  5. LOSARTAN POTASSIUM [Concomitant]
     Active Substance: LOSARTAN POTASSIUM
  6. OXCARBAZEPINE [Concomitant]
     Active Substance: OXCARBAZEPINE
  7. PRAVASTATIN SODIUM [Concomitant]
     Active Substance: PRAVASTATIN SODIUM
  8. ZETIA [Concomitant]
     Active Substance: EZETIMIBE
  9. CARVEDILOL [Concomitant]
     Active Substance: CARVEDILOL
  10. MAGNESIUM OXIDE [Concomitant]
     Active Substance: MAGNESIUM OXIDE
  11. VITAMIN D 400 [Concomitant]
  12. VITAMIN B COMPLEX [Concomitant]
     Active Substance: CYANOCOBALAMIN\DEXPANTHENOL\NIACINAMIDE\PYRIDOXINE HYDROCHLORIDE\RIBOFLAVIN 5^-PHOSPHATE SODIUM\THIA
  13. DUREZOL [Concomitant]
     Active Substance: DIFLUPREDNATE
  14. DORZOLAMIDE [Concomitant]
     Active Substance: DORZOLAMIDE

REACTIONS (4)
  - Eye pain [Recovering/Resolving]
  - Eye irritation [Unknown]
  - Periorbital pain [Unknown]
  - Photophobia [Unknown]

NARRATIVE: CASE EVENT DATE: 20220219
